FAERS Safety Report 14296652 (Version 2)
Quarter: 2018Q1

REPORT INFORMATION
  Report Type: Spontaneous
  Country: DE (occurrence: DE)
  Receive Date: 20171218
  Receipt Date: 20180110
  Transmission Date: 20180509
  Serious: Yes (Life-Threatening, Hospitalization, Disabling, Other)
  Sender: FDA-Public Use
  Company Number: DE-VIIV HEALTHCARE LIMITED-DE2017GSK181858

PATIENT
  Age: 44 Year
  Sex: Male
  Weight: 77 kg

DRUGS (2)
  1. TRIUMEQ [Suspect]
     Active Substance: ABACAVIR SULFATE\DOLUTEGRAVIR SODIUM\LAMIVUDINE
     Indication: HIV INFECTION
     Dosage: 1 UNK, QD
     Dates: start: 201512
  2. SILDENAFIL. [Concomitant]
     Active Substance: SILDENAFIL
     Indication: ERECTILE DYSFUNCTION
     Dosage: 100 MG, PRN
     Dates: start: 20140710

REACTIONS (10)
  - Acute myocardial infarction [Recovered/Resolved with Sequelae]
  - Ventricular fibrillation [Recovered/Resolved with Sequelae]
  - Hyperventilation [Unknown]
  - Mitral valve incompetence [Unknown]
  - Tricuspid valve incompetence [Unknown]
  - Coronary artery stenosis [Unknown]
  - Chest pain [Unknown]
  - Electrocardiogram change [Unknown]
  - Muscle spasms [Unknown]
  - Agonal rhythm [Unknown]

NARRATIVE: CASE EVENT DATE: 20171119
